FAERS Safety Report 9086049 (Version 1)
Quarter: 2013Q1

REPORT INFORMATION
  Report Type: Report from Study
  Country: US (occurrence: US)
  Receive Date: 20130131
  Receipt Date: 20130131
  Transmission Date: 20140127
  Serious: No
  Sender: FDA-Public Use
  Company Number: US-ABBOTT-12P-163-1010723-00

PATIENT
  Age: 38 Year
  Sex: Male

DRUGS (12)
  1. HUMIRA [Suspect]
     Indication: CROHN^S DISEASE
     Dates: start: 20120821
  2. PAMELOR [Concomitant]
     Indication: DEPRESSION
     Dosage: AT BEDITME
  3. PAMELOR [Concomitant]
     Indication: ANXIETY
  4. NEURONTIN [Concomitant]
     Indication: PAIN
     Dosage: ONE IN AM AND ONE IN PM
  5. NEURONTIN [Concomitant]
     Indication: CROHN^S DISEASE
  6. PAXIL [Concomitant]
     Indication: DEPRESSION
     Dosage: AT BEDTIME
  7. ENTOCORT EC [Concomitant]
     Indication: CROHN^S DISEASE
     Dosage: AT BEDTIME
  8. NORCO [Concomitant]
     Indication: ABDOMINAL PAIN
     Dosage: 10/325 4 PILLS DAILY
  9. NORCO [Concomitant]
     Indication: MIGRAINE
  10. SUDAFED [Concomitant]
     Indication: HYPERSENSITIVITY
     Dosage: ONE IN AM AND ONE IN PM
  11. BENADRYL [Concomitant]
     Indication: HYPERSENSITIVITY
     Dosage: TWO IN AM AND TWO IN PM
  12. MEDICAL MARIJUANA [Concomitant]
     Indication: SLEEP DISORDER
     Dosage: SMOKES AT NIGHT

REACTIONS (3)
  - Rectal haemorrhage [Not Recovered/Not Resolved]
  - Rectal haemorrhage [Not Recovered/Not Resolved]
  - Injection site bruising [Not Recovered/Not Resolved]
